FAERS Safety Report 6647492-5 (Version None)
Quarter: 2010Q1

REPORT INFORMATION
  Report Type: 
  Country: None (occurrence: None)
  Receive Date: 20100323
  Receipt Date: 20100311
  Transmission Date: 20100710
  Serious: Yes (Hospitalization, Disabling)
  Sender: FDA-Public Use
  Company Number: US-ROCHE-401244

PATIENT
  Sex: Male
  Weight: 89.8 kg

DRUGS (4)
  1. ACCUTANE [Suspect]
     Dosage: FORMULATION = CAPSULE
     Route: 048
     Dates: start: 19890216, end: 19890818
  2. ACCUTANE [Suspect]
     Dosage: FORMULATION = CAPSULE
     Route: 048
     Dates: start: 19900313, end: 19901216
  3. ACCUTANE [Suspect]
     Dosage: FORMULATION = UNKNOWN
     Route: 048
     Dates: start: 19941229, end: 19950319
  4. TYLENOL-500 [Concomitant]
     Indication: DRUG USE FOR UNKNOWN INDICATION
     Route: 048

REACTIONS (58)
  - ABDOMINAL DISTENSION [None]
  - ARTHRALGIA [None]
  - BLOOD ALKALINE PHOSPHATASE INCREASED [None]
  - BLOOD MAGNESIUM DECREASED [None]
  - BLOOD PHOSPHORUS DECREASED [None]
  - BLOOD SODIUM DECREASED [None]
  - BONE DISORDER [None]
  - CARDIOMEGALY [None]
  - CHEST DISCOMFORT [None]
  - CHRONIC ALLOGRAFT NEPHROPATHY [None]
  - CHRONIC SINUSITIS [None]
  - COMPLICATIONS OF TRANSPLANT SURGERY [None]
  - CONJUNCTIVITIS ALLERGIC [None]
  - CYTOMEGALOVIRUS INFECTION [None]
  - DEHYDRATION [None]
  - DYSPEPSIA [None]
  - EPISTAXIS [None]
  - FATIGUE [None]
  - FRACTURE [None]
  - GASTROENTERITIS [None]
  - GLOMERULONEPHRITIS [None]
  - GLOMERULOSCLEROSIS [None]
  - GRANULOMATOUS LIVER DISEASE [None]
  - HAEMATOCRIT DECREASED [None]
  - HEADACHE [None]
  - HYPERGLYCAEMIA [None]
  - HYPERKALAEMIA [None]
  - HYPERLIPIDAEMIA [None]
  - HYPERSENSITIVITY [None]
  - HYPERTENSION [None]
  - IMMUNOSUPPRESSANT DRUG LEVEL DECREASED [None]
  - INFLAMMATION [None]
  - LIMB INJURY [None]
  - METABOLIC DISORDER [None]
  - MULTI-ORGAN DISORDER [None]
  - MUSCLE SPASMS [None]
  - MYOSITIS [None]
  - OROPHARYNGEAL PAIN [None]
  - OSTEITIS [None]
  - PARAESTHESIA [None]
  - PHARYNGITIS [None]
  - PLATELET COUNT INCREASED [None]
  - PROTEIN TOTAL INCREASED [None]
  - PROTEINURIA [None]
  - PYREXIA [None]
  - REFLUX OESOPHAGITIS [None]
  - RENAL CYST [None]
  - RENAL DISORDER [None]
  - RENAL FAILURE [None]
  - RENAL FAILURE CHRONIC [None]
  - RENAL TRANSPLANT [None]
  - SINUS TACHYCARDIA [None]
  - SKIN PAPILLOMA [None]
  - TREMOR [None]
  - UPPER RESPIRATORY TRACT INFECTION [None]
  - URTICARIA [None]
  - VIRAL INFECTION [None]
  - WEIGHT DECREASED [None]
